FAERS Safety Report 10387832 (Version 1)
Quarter: 2014Q3

REPORT INFORMATION
  Report Type: Spontaneous
  Country: GB (occurrence: None)
  Receive Date: 20140813
  Receipt Date: 20140813
  Transmission Date: 20150326
  Serious: Yes (Other)
  Sender: FDA-Public Use
  Company Number: 2014-20120

PATIENT
  Sex: Female

DRUGS (1)
  1. EYLEA [Suspect]
     Active Substance: AFLIBERCEPT
     Indication: AGE-RELATED MACULAR DEGENERATION
     Dates: start: 201312, end: 201312

REACTIONS (3)
  - Visual impairment [None]
  - Inappropriate schedule of drug administration [None]
  - Drug dose omission [None]

NARRATIVE: CASE EVENT DATE: 2014
